FAERS Safety Report 8230808-6 (Version None)
Quarter: 2012Q1

REPORT INFORMATION
  Report Type: 
  Country: None (occurrence: None)
  Receive Date: 20120320
  Receipt Date: 20120309
  Transmission Date: 20120608
  Serious: Yes (Death, Hospitalization, Other)
  Sender: FDA-Public Use
  Company Number: 539719

PATIENT
  Age: 71 Year
  Sex: Female

DRUGS (2)
  1. VINORELBINE TARTRATE [Suspect]
     Indication: ADENOCARCINOMA
  2. CISPLATIN [Suspect]
     Indication: ADENOCARCINOMA

REACTIONS (4)
  - BRONCHOPNEUMONIA [None]
  - PNEUMONIA KLEBSIELLA [None]
  - INTERSTITIAL LUNG DISEASE [None]
  - NEUTROPENIC SEPSIS [None]
